FAERS Safety Report 20622384 (Version 1)
Quarter: 2022Q1

REPORT INFORMATION
  Report Type: Other
  Country: None (occurrence: JP)
  Receive Date: 20220322
  Receipt Date: 20220322
  Transmission Date: 20220423
  Serious: Yes (Death, Other)
  Sender: FDA-Public Use
  Company Number: JP-Breckenridge Pharmaceutical, Inc.-2127007

PATIENT
  Age: 59 Year
  Sex: Male

DRUGS (1)
  1. LEVETIRACETAM [Suspect]
     Active Substance: LEVETIRACETAM
     Indication: Seizure prophylaxis
     Route: 048

REACTIONS (7)
  - Drug reaction with eosinophilia and systemic symptoms [Fatal]
  - Multiple organ dysfunction syndrome [Fatal]
  - Drug-induced liver injury [Fatal]
  - Cholestasis [Fatal]
  - Death [Fatal]
  - Leukopenia [Fatal]
  - Human herpesvirus 6 infection reactivation [Fatal]
